FAERS Safety Report 20662925 (Version 1)
Quarter: 2022Q2

REPORT INFORMATION
  Report Type: Spontaneous
  Country: US (occurrence: US)
  Receive Date: 20220401
  Receipt Date: 20220401
  Transmission Date: 20220721
  Serious: No
  Sender: FDA-Public Use
  Company Number: US-GW PHARMA-202203USGW01536

PATIENT
  Sex: Female

DRUGS (2)
  1. EPIDIOLEX [Suspect]
     Active Substance: CANNABIDIOL
     Indication: Epilepsy
     Dosage: 30 MILLIGRAM, QD
     Route: 048
     Dates: start: 202104
  2. BRIVIACT [Concomitant]
     Active Substance: BRIVARACETAM
     Indication: Product used for unknown indication
     Dosage: UNK
     Route: 065

REACTIONS (6)
  - Chromaturia [Unknown]
  - Urine abnormality [Unknown]
  - Vision blurred [Unknown]
  - Somnolence [Unknown]
  - Diarrhoea [Recovered/Resolved]
  - Off label use [Unknown]
